FAERS Safety Report 14261043 (Version 1)
Quarter: 2017Q4

REPORT INFORMATION
  Report Type: Spontaneous
  Country: AR (occurrence: AR)
  Receive Date: 20171207
  Receipt Date: 20171207
  Transmission Date: 20180321
  Serious: Yes (Disabling)
  Sender: FDA-Public Use
  Company Number: None

PATIENT
  Age: 36 Year
  Sex: Male
  Weight: 58 kg

DRUGS (4)
  1. BETHAMETASONE [Suspect]
     Active Substance: BETAMETHASONE
     Indication: ECZEMA
     Route: 061
     Dates: start: 20150701, end: 20151231
  2. ZINC CREAM [Concomitant]
  3. CLOBETASOL [Suspect]
     Active Substance: CLOBETASOL
     Indication: ECZEMA
     Route: 061
     Dates: start: 20160101, end: 20161231
  4. ATARAX [Concomitant]
     Active Substance: HYDROXYZINE HYDROCHLORIDE

REACTIONS (4)
  - Withdrawal syndrome [None]
  - Dependence [None]
  - Iatrogenic injury [None]
  - Red man syndrome [None]

NARRATIVE: CASE EVENT DATE: 20151201
